FAERS Safety Report 7973049-X (Version None)
Quarter: 2011Q4

REPORT INFORMATION
  Report Type: 
  Country: None (occurrence: None)
  Receive Date: 20111209
  Receipt Date: 20111123
  Transmission Date: 20120403
  Serious: Yes (Death)
  Sender: FDA-Public Use
  Company Number: 2011-4807

PATIENT
  Age: 91 Year
  Sex: Male

DRUGS (2)
  1. APOKYN (APOMORPHINE HYDROCHLORIDE) (APOMORPHINE HYDROCHLORIDE) (APOMOR [Suspect]
     Indication: PARKINSON'S DISEASE
     Dates: start: 20101001
  2. APOKYN (APOMORPHINE HYDROCHLORIDE) (APOMORPHINE HYDROCHLORIDE) (APOMOR [Suspect]
     Indication: PARKINSON'S DISEASE
     Dates: start: 20100901

REACTIONS (2)
  - PNEUMONIA [None]
  - GENERAL PHYSICAL HEALTH DETERIORATION [None]
